FAERS Safety Report 5675055-7 (Version None)
Quarter: 2008Q2

REPORT INFORMATION
  Report Type: 
  Country: None (occurrence: None)
  Receive Date: 20080303
  Receipt Date: 20071205
  Transmission Date: 20081010
  Serious: Yes (Hospitalization, Other)
  Sender: FDA-Public Use
  Company Number: RB-8745-2007

PATIENT
  Sex: Female
  Weight: 3.3566 kg

DRUGS (3)
  1. SUBOXONE [Suspect]
     Indication: DRUG DEPENDENCE
     Dosage: 8 MG QD TRANSPLACENTAL
     Route: 064
     Dates: start: 20070329, end: 20070523
  2. SUBUTEX [Suspect]
     Indication: DRUG DEPENDENCE
     Dosage: 8 MG QD TRANSPLACENTAL ; 6 MG QD TRANSPLACENTAL
     Route: 064
     Dates: end: 20071205
  3. SUBUTEX [Suspect]
     Indication: DRUG DEPENDENCE
     Dosage: 8 MG QD TRANSPLACENTAL ; 6 MG QD TRANSPLACENTAL
     Route: 064
     Dates: start: 20070524

REACTIONS (3)
  - BLOOD GLUCOSE DECREASED [None]
  - DRUG EXPOSURE DURING PREGNANCY [None]
  - DRUG WITHDRAWAL SYNDROME NEONATAL [None]
